FAERS Safety Report 13239951 (Version 1)
Quarter: 2017Q1

REPORT INFORMATION
  Report Type: Spontaneous
  Country: US (occurrence: US)
  Receive Date: 20170216
  Receipt Date: 20170216
  Transmission Date: 20170428
  Serious: No
  Sender: FDA-Public Use
  Company Number: US-PFIZER INC-2017066463

PATIENT
  Sex: Male

DRUGS (1)
  1. XELJANZ [Suspect]
     Active Substance: TOFACITINIB CITRATE
     Indication: PSORIATIC ARTHROPATHY
     Dosage: 5 MG, UNK

REACTIONS (6)
  - Arthralgia [Unknown]
  - Psoriasis [Unknown]
  - Flatulence [Unknown]
  - Dyspepsia [Unknown]
  - Rash [Unknown]
  - Product use issue [Unknown]
